FAERS Safety Report 16482991 (Version 1)
Quarter: 2019Q2

REPORT INFORMATION
  Report Type: Spontaneous
  Country: HR (occurrence: HR)
  Receive Date: 20190627
  Receipt Date: 20190627
  Transmission Date: 20190711
  Serious: Yes (Other)
  Sender: FDA-Public Use
  Company Number: HR-TEVA-2019-HR-1069886

PATIENT
  Age: 3 Year
  Sex: Female
  Weight: 15 kg

DRUGS (3)
  1. RINOLAN SIRUP [Suspect]
     Active Substance: LORATADINE
     Indication: DERMATITIS ALLERGIC
     Dosage: 1MG/ML; 1X5ML
     Route: 048
     Dates: start: 20190527, end: 20190527
  2. SODIUM VALPROATE [Concomitant]
     Active Substance: VALPROATE SODIUM
     Indication: SEIZURE
     Dosage: 1ML/300MG; 10+0+15GTT
     Route: 048
     Dates: start: 20181012
  3. KALCIJEV KARBONAT KRKA TABLETE 1 G [Concomitant]
     Indication: PRADER-WILLI SYNDROME
     Dosage: 1GR; 250MG
     Route: 048
     Dates: start: 20170130

REACTIONS (1)
  - Somnolence [Recovered/Resolved]

NARRATIVE: CASE EVENT DATE: 20190527
